FAERS Safety Report 25833790 (Version 1)
Quarter: 2025Q3

REPORT INFORMATION
  Report Type: Report from Study
  Country: US (occurrence: US)
  Receive Date: 20250923
  Receipt Date: 20250923
  Transmission Date: 20251021
  Serious: Yes (Hospitalization, Other)
  Sender: ABBVIE
  Company Number: US-ABBVIE-6464697

PATIENT
  Age: 73 Year
  Sex: Male

DRUGS (1)
  1. SKYRIZI [Suspect]
     Active Substance: RISANKIZUMAB-RZAA
     Indication: Psoriasis
     Route: 058
     Dates: start: 20241011, end: 20250701

REACTIONS (6)
  - Head injury [Unknown]
  - Fall [Unknown]
  - Sepsis [Unknown]
  - Urinary tract infection [Unknown]
  - Seizure [Unknown]
  - Incoherent [Unknown]

NARRATIVE: CASE EVENT DATE: 20250101
